FAERS Safety Report 25008177 (Version 2)
Quarter: 2025Q1

REPORT INFORMATION
  Report Type: Spontaneous
  Country: US (occurrence: US)
  Receive Date: 20250225
  Receipt Date: 20250313
  Transmission Date: 20250408
  Serious: Yes (Hospitalization, Other)
  Sender: SANDOZ
  Company Number: None

PATIENT
  Age: 47 Year
  Sex: Male

DRUGS (3)
  1. ADALIMUMAB [Suspect]
     Active Substance: ADALIMUMAB
     Indication: Psoriasis
     Route: 065
  2. ITRACONAZOLE [Suspect]
     Active Substance: ITRACONAZOLE
     Indication: Psoriasis
     Route: 065
  3. METHOTREXATE SODIUM [Suspect]
     Active Substance: METHOTREXATE SODIUM
     Indication: Psoriasis
     Route: 065

REACTIONS (6)
  - Haemophagocytic lymphohistiocytosis [Unknown]
  - Histoplasmosis disseminated [Recovering/Resolving]
  - Pneumonia klebsiella [Unknown]
  - Epstein-Barr virus infection [Unknown]
  - Gastrointestinal disorder [Unknown]
  - Drug level above therapeutic [Unknown]
